FAERS Safety Report 5118980-8 (Version None)
Quarter: 2006Q3

REPORT INFORMATION
  Report Type: 
  Country: None (occurrence: None)
  Receive Date: 20060927
  Receipt Date: 20060918
  Transmission Date: 20061208
  Serious: Yes (Other)
  Sender: FDA-Public Use
  Company Number: 2006106193

PATIENT
  Age: 70 Year
  Sex: Female

DRUGS (2)
  1. XALATAN [Suspect]
     Indication: GLAUCOMA
     Dosage: 1.5 MCG (1.5 MCG, 1 IN 1 D) INTRAOCULAR
     Route: 031
     Dates: start: 20060401, end: 20060901
  2. DRUG UNSPECIFIED [Concomitant]

REACTIONS (1)
  - ALPHA 1 FOETOPROTEIN INCREASED [None]
